FAERS Safety Report 9893918 (Version 1)
Quarter: 2014Q1

REPORT INFORMATION
  Report Type: Spontaneous
  Country: US (occurrence: US)
  Receive Date: 20140213
  Receipt Date: 20140213
  Transmission Date: 20141002
  Serious: No
  Sender: FDA-Public Use
  Company Number: US-BAYER-2014-019130

PATIENT
  Sex: Female

DRUGS (1)
  1. BEYAZ [Suspect]
     Dosage: UNK
     Dates: start: 2010

REACTIONS (3)
  - Vulvovaginal pain [Not Recovered/Not Resolved]
  - Drug dose omission [None]
  - Inappropriate schedule of drug administration [None]
